FAERS Safety Report 5952685-6 (Version None)
Quarter: 2008Q4

REPORT INFORMATION
  Report Type: 
  Country: None (occurrence: None)
  Receive Date: 20081114
  Receipt Date: 20081105
  Transmission Date: 20090506
  Serious: Yes (Life-Threatening)
  Sender: FDA-Public Use
  Company Number: GB-RANBAXY-2008RR-19132

PATIENT
  Age: 49 Year
  Sex: Male
  Weight: 107 kg

DRUGS (4)
  1. SERTRALINE [Suspect]
     Dosage: 50 MG, QID
     Route: 048
     Dates: end: 20081010
  2. LANSOPRAZOLE [Concomitant]
     Dosage: 15 MG, QD
     Route: 048
  3. OLANZAPINE [Concomitant]
     Dosage: 30 MG, QD
     Route: 048
     Dates: start: 20050101
  4. ZOPICLONE [Concomitant]
     Dosage: 15 MG, QD
     Route: 048

REACTIONS (1)
  - PANCREATITIS HAEMORRHAGIC [None]
